FAERS Safety Report 4668473-7 (Version None)
Quarter: 2005Q2

REPORT INFORMATION
  Report Type: 
  Country: None (occurrence: None)
  Receive Date: 20050518
  Receipt Date: 20050504
  Transmission Date: 20051028
  Serious: Yes (Hospitalization)
  Sender: FDA-Public Use
  Company Number: B0379924A

PATIENT
  Age: 54 Year
  Sex: Male
  Weight: 66.8602 kg

DRUGS (7)
  1. HYCAMTIN [Suspect]
     Indication: SMALL CELL LUNG CANCER STAGE UNSPECIFIED
     Dosage: 1 MG/M2 / INTRAVENOUS
     Route: 042
     Dates: start: 20050106, end: 20050110
  2. CISPLATIN [Suspect]
     Indication: SMALL CELL LUNG CANCER STAGE UNSPECIFIED
     Dosage: 75 MG/M2 / INTRAVENOUS
     Route: 042
     Dates: start: 20050110, end: 20050110
  3. MOUTHWASH [Concomitant]
  4. GRANISETRON  HCL [Concomitant]
  5. DIMENHYDRINATE [Concomitant]
  6. PANTOPRAZOLE [Concomitant]
  7. FORTECORTIN [Concomitant]

REACTIONS (3)
  - DEHYDRATION [None]
  - ORAL INTAKE REDUCED [None]
  - POST PROCEDURAL VOMITING [None]
